FAERS Safety Report 5623557-1 (Version None)
Quarter: 2008Q1

REPORT INFORMATION
  Report Type: 
  Country: None (occurrence: None)
  Receive Date: 20080212
  Receipt Date: 20080131
  Transmission Date: 20080703
  Serious: Yes (Other)
  Sender: FDA-Public Use
  Company Number: US-PFIZER INC-2008012056

PATIENT
  Age: 70 Year

DRUGS (1)
  1. LYRICA [Suspect]

REACTIONS (1)
  - RASH [None]
